FAERS Safety Report 7511908-2 (Version None)
Quarter: 2011Q2

REPORT INFORMATION
  Report Type: 
  Country: None (occurrence: None)
  Receive Date: 20110531
  Receipt Date: 20110526
  Transmission Date: 20111010
  Serious: Yes (Other)
  Sender: FDA-Public Use
  Company Number: US-PFIZER INC-2011114903

PATIENT
  Sex: Female
  Weight: 77.098 kg

DRUGS (10)
  1. LOVAN [Concomitant]
     Indication: DEPRESSION
  2. CHANTIX [Suspect]
     Dosage: 1 MG, 2X/DAY
     Route: 048
     Dates: start: 20110101, end: 20110501
  3. LOVAN [Concomitant]
     Indication: OBSESSIVE-COMPULSIVE DISORDER
     Dosage: UNK
  4. RESPIDON [Concomitant]
     Indication: DEPRESSION
  5. RESPIDON [Concomitant]
     Indication: ANXIETY
  6. RESPIDON [Concomitant]
     Indication: POST-TRAUMATIC STRESS DISORDER
  7. LOVAN [Concomitant]
     Indication: ANXIETY
  8. CHANTIX [Suspect]
     Indication: SMOKING CESSATION THERAPY
     Dosage: 0.5 MG, 1X/DAY
     Route: 048
     Dates: start: 20110401, end: 20110101
  9. RESPIDON [Concomitant]
     Indication: OBSESSIVE-COMPULSIVE DISORDER
     Dosage: UNK
  10. LOVAN [Concomitant]
     Indication: POST-TRAUMATIC STRESS DISORDER

REACTIONS (4)
  - OBSESSIVE-COMPULSIVE DISORDER [None]
  - PARANOIA [None]
  - FEELING ABNORMAL [None]
  - ANXIETY [None]
